FAERS Safety Report 7920463-4 (Version None)
Quarter: 2011Q4

REPORT INFORMATION
  Report Type: 
  Country: None (occurrence: None)
  Receive Date: 20111117
  Receipt Date: 20111109
  Transmission Date: 20120403
  Serious: Yes (Death, Other)
  Sender: FDA-Public Use
  Company Number: PHEH2009US07737

PATIENT
  Sex: Female

DRUGS (8)
  1. KEFLEX [Concomitant]
  2. XALATAN [Concomitant]
  3. LORTAB [Concomitant]
  4. CLEOCIN HYDROCHLORIDE [Concomitant]
  5. MIDAZOLAM                               /USA/ [Concomitant]
  6. HYDROCODIN [Concomitant]
  7. ZOMETA [Suspect]
     Dosage: UNK UKN, QMO
  8. FENTANYL [Concomitant]

REACTIONS (9)
  - EXPOSED BONE IN JAW [None]
  - INJURY [None]
  - MASTICATION DISORDER [None]
  - OSTEONECROSIS OF JAW [None]
  - WEIGHT DECREASED [None]
  - METASTATIC RENAL CELL CARCINOMA [None]
  - METASTASES TO BONE [None]
  - TONGUE ULCERATION [None]
  - DENTAL CARIES [None]
